FAERS Safety Report 6419340-X (Version None)
Quarter: 2009Q4

REPORT INFORMATION
  Report Type: 
  Country: None (occurrence: None)
  Receive Date: 20091008
  Receipt Date: 20090724
  Transmission Date: 20100525
  Serious: Yes (Other)
  Sender: FDA-Public Use
  Company Number: ADR-281-033

PATIENT
  Age: 44 Year
  Sex: Female
  Weight: 90.7194 kg

DRUGS (6)
  1. TOPIRAMATE [Suspect]
     Indication: NEURALGIA
     Dosage: 200 MG, ORAL
     Route: 048
     Dates: start: 20090624, end: 20090723
  2. CITALOPRAM HYDROBROMIDE [Concomitant]
  3. LISOPRIL [Concomitant]
  4. SIMVASTATIN [Concomitant]
  5. AMOXICILLIN [Concomitant]
  6. TIZANADINE [Concomitant]

REACTIONS (1)
  - ALOPECIA [None]
